FAERS Safety Report 8827342 (Version 1)
Quarter: 2012Q4

REPORT INFORMATION
  Report Type: 
  Country: US (occurrence: US)
  Receive Date: 20121005
  Receipt Date: 20121005
  Transmission Date: 20130627
  Serious: Yes (Other)
  Sender: FDA-Public Use
  Company Number: US-BRISTOL-MYERS SQUIBB COMPANY-16040834

PATIENT
  Age: 68 Year
  Sex: Male

DRUGS (8)
  1. AVAPRO [Suspect]
     Dosage: 1df= 300/25 mg
  2. AMLODIPINE [Concomitant]
  3. LEVOXYL [Concomitant]
  4. SIMVASTATIN [Concomitant]
  5. OMEPRAZOLE [Concomitant]
  6. METOPROLOL [Concomitant]
  7. TERAZOSIN [Concomitant]
  8. VITAMIN D [Concomitant]

REACTIONS (2)
  - Swollen tongue [Not Recovered/Not Resolved]
  - Diarrhoea [Not Recovered/Not Resolved]
